FAERS Safety Report 9771215 (Version 3)
Quarter: 2014Q1

REPORT INFORMATION
  Report Type: Spontaneous
  Country: US (occurrence: US)
  Receive Date: 20131218
  Receipt Date: 20140326
  Transmission Date: 20141002
  Serious: Yes (Hospitalization, Other)
  Sender: FDA-Public Use
  Company Number: US-PFIZER INC-2013356761

PATIENT
  Age: 45 Year
  Sex: Male

DRUGS (5)
  1. SUTENT [Suspect]
     Indication: RENAL CANCER
     Dosage: 50 MG, DAILY, 4 WEEKS ON AND 2 WEEKS OFF
     Route: 048
     Dates: start: 20130710, end: 201403
  2. PERCOCET [Concomitant]
     Dosage: UNK
  3. STOOL SOFTENER [Concomitant]
     Dosage: UNK
  4. OMEGA 3 [Concomitant]
     Dosage: UNK
  5. LOSARTAN [Concomitant]
     Dosage: UNK

REACTIONS (8)
  - Chills [Unknown]
  - Pyrexia [Unknown]
  - Pneumonia [Unknown]
  - Stomatitis [Unknown]
  - Dry skin [Unknown]
  - Diarrhoea [Unknown]
  - Vomiting [Unknown]
  - Platelet count decreased [Unknown]
